FAERS Safety Report 17591335 (Version 6)
Quarter: 2020Q3

REPORT INFORMATION
  Report Type: Spontaneous
  Country: US (occurrence: US)
  Receive Date: 20200327
  Receipt Date: 20200727
  Transmission Date: 20201102
  Serious: Yes (Other)
  Sender: FDA-Public Use
  Company Number: US-BAYER-2020-048939

PATIENT
  Age: 56 Year
  Sex: Female

DRUGS (1)
  1. MIRENA [Suspect]
     Active Substance: LEVONORGESTREL
     Indication: MENOPAUSE
     Dosage: 20 ?G PER DAY, CONTINUOUSLY
     Route: 015
     Dates: start: 201411, end: 20200320

REACTIONS (9)
  - Device breakage [Recovered/Resolved]
  - Off label use of device [None]
  - Abdominal distension [Recovered/Resolved]
  - Medical device pain [Recovered/Resolved]
  - Embedded device [Recovered/Resolved]
  - Device use issue [None]
  - Abdominal pain [Recovered/Resolved]
  - Device use issue [None]
  - Complication of device removal [Recovered/Resolved]

NARRATIVE: CASE EVENT DATE: 201411
